FAERS Safety Report 7086127-7 (Version None)
Quarter: 2010Q4

REPORT INFORMATION
  Report Type: 
  Country: None (occurrence: None)
  Receive Date: 20101105
  Receipt Date: 20101028
  Transmission Date: 20110411
  Serious: Yes (Hospitalization)
  Sender: FDA-Public Use
  Company Number: B0681692A

PATIENT
  Age: 85 Year
  Sex: Female

DRUGS (5)
  1. FORTUM [Suspect]
     Indication: PRODUCT USED FOR UNKNOWN INDICATION
     Dosage: 2G THREE TIMES PER DAY
     Route: 042
     Dates: start: 20100910, end: 20100924
  2. FOSFOMYCINE [Suspect]
     Indication: PRODUCT USED FOR UNKNOWN INDICATION
     Dosage: 4G TWICE PER DAY
     Route: 042
     Dates: start: 20100910, end: 20100924
  3. TRIFLUCAN [Suspect]
     Indication: PRODUCT USED FOR UNKNOWN INDICATION
     Dosage: 400MG PER DAY
     Route: 065
     Dates: start: 20100824, end: 20100924
  4. LOXEN [Concomitant]
     Route: 048
  5. DIFFU K [Concomitant]
     Route: 048

REACTIONS (5)
  - BLOOD BILIRUBIN INCREASED [None]
  - HEPATOCELLULAR INJURY [None]
  - JAUNDICE [None]
  - LIVER DISORDER [None]
  - TRANSAMINASES INCREASED [None]
